FAERS Safety Report 26215577 (Version 1)
Quarter: 2025Q4

REPORT INFORMATION
  Report Type: Spontaneous
  Country: EU (occurrence: EU)
  Receive Date: 20251231
  Receipt Date: 20251231
  Transmission Date: 20260119
  Serious: Yes (Life-Threatening, Hospitalization, Other)
  Sender: GLAXOSMITHKLINE
  Company Number: EU-GSK-ES2025GSK166915

PATIENT
  Age: 55 Year
  Sex: Female

DRUGS (2)
  1. DOSTARLIMAB [Suspect]
     Active Substance: DOSTARLIMAB
     Indication: Endometrial adenocarcinoma
     Dosage: 500 MG EVERY THREE WEEKS INFUSION
  2. UNSPECIFIED INGREDIENT [Concomitant]
     Active Substance: UNSPECIFIED INGREDIENT
     Indication: Pelvic venous thrombosis
     Dosage: THERAPEUTIC

REACTIONS (2)
  - Immune thrombocytopenia [Recovered/Resolved]
  - Rectal haemorrhage [Recovered/Resolved]
